FAERS Safety Report 11112311 (Version 1)
Quarter: 2015Q2

REPORT INFORMATION
  Report Type: Spontaneous
  Country: US (occurrence: US)
  Receive Date: 20150514
  Receipt Date: 20150514
  Transmission Date: 20150821
  Serious: No
  Sender: FDA-Public Use
  Company Number: US-SHIRE-US201504196

PATIENT
  Sex: Female

DRUGS (1)
  1. INTUNIV [Suspect]
     Active Substance: GUANFACINE HYDROCHLORIDE
     Indication: TRICHOTILLOMANIA
     Dosage: 2 MG, UNKNOWN
     Route: 048

REACTIONS (2)
  - No adverse event [Unknown]
  - Product use issue [Unknown]
